FAERS Safety Report 20095395 (Version 1)
Quarter: 2021Q4

REPORT INFORMATION
  Report Type: Spontaneous
  Country: US (occurrence: US)
  Receive Date: 20211122
  Receipt Date: 20211122
  Transmission Date: 20220303
  Serious: No
  Sender: FDA-Public Use
  Company Number: US-TEVA-2021-US-1976456

PATIENT
  Age: 76 Year
  Sex: Male

DRUGS (2)
  1. CINQAIR [Suspect]
     Active Substance: RESLIZUMAB
     Indication: Pulmonary oedema
     Route: 042
  2. CINQAIR [Suspect]
     Active Substance: RESLIZUMAB
     Indication: Dyspnoea

REACTIONS (1)
  - Drug ineffective [Unknown]
